FAERS Safety Report 9819115 (Version 2)
Quarter: 2014Q1

REPORT INFORMATION
  Report Type: Spontaneous
  Country: US (occurrence: US)
  Receive Date: 20140115
  Receipt Date: 20140115
  Transmission Date: 20141002
  Serious: Yes (Other)
  Sender: FDA-Public Use
  Company Number: US-BRISTOL-MYERS SQUIBB COMPANY-19866177

PATIENT
  Age: 33 Year
  Sex: Female
  Weight: 74.83 kg

DRUGS (8)
  1. ABILIFY [Suspect]
     Indication: BIPOLAR DISORDER
     Route: 048
     Dates: start: 201210
  2. LAMICTAL [Suspect]
     Indication: BIPOLAR DISORDER
  3. NEXIUM [Concomitant]
  4. RISPERIDAL [Concomitant]
  5. LISINOPRIL [Concomitant]
     Route: 048
  6. NOVOLOG [Concomitant]
  7. METOPROLOL [Concomitant]
  8. LEXAPRO [Concomitant]

REACTIONS (1)
  - Bipolar disorder [Unknown]
